FAERS Safety Report 8462720-1 (Version None)
Quarter: 2012Q2

REPORT INFORMATION
  Report Type: 
  Country: None (occurrence: None)
  Receive Date: 20120618
  Receipt Date: 20120618
  Transmission Date: 20120825
  Serious: Yes (Other)
  Sender: FDA-Public Use
  Company Number: None

PATIENT
  Age: 84 Year
  Sex: Male

DRUGS (1)
  1. AMIODARONE HCL [Suspect]
     Indication: HEART RATE INCREASED
     Dosage: ONCE DAILY PO
     Route: 048
     Dates: start: 20110801, end: 20111101

REACTIONS (3)
  - OPTIC ISCHAEMIC NEUROPATHY [None]
  - HEART RATE INCREASED [None]
  - BLINDNESS [None]
